FAERS Safety Report 21606147 (Version 2)
Quarter: 2024Q1

REPORT INFORMATION
  Report Type: Report from Study
  Country: US (occurrence: US)
  Receive Date: 20221117
  Receipt Date: 20240222
  Transmission Date: 20240410
  Serious: Yes (Other)
  Sender: FDA-Public Use
  Company Number: US-ABBVIE-22K-163-4377114-00

PATIENT
  Age: 67 Year
  Sex: Female
  Weight: 73.03 kg

DRUGS (17)
  1. HUMIRA [Suspect]
     Active Substance: ADALIMUMAB
     Indication: Product used for unknown indication
     Route: 058
  2. HUMIRA [Suspect]
     Active Substance: ADALIMUMAB
     Route: 058
     Dates: start: 20220202, end: 20220427
  3. LEXISCAN [Suspect]
     Active Substance: REGADENOSON
     Indication: Product used for unknown indication
     Route: 065
  4. PFIZER-BIONTECH COVID-19 VACCINE [Concomitant]
     Active Substance: TOZINAMERAN
     Indication: COVID-19 immunisation
     Dosage: 1 IN ONCE (FIRST DOSE)
     Route: 030
     Dates: start: 20210226, end: 20210226
  5. PFIZER-BIONTECH COVID-19 VACCINE [Concomitant]
     Active Substance: TOZINAMERAN
     Indication: COVID-19 immunisation
     Dosage: 1 IN ONCE (SECOND DOSE)
     Route: 030
     Dates: start: 20210319, end: 20210319
  6. PFIZER-BIONTECH COVID-19 VACCINE [Concomitant]
     Active Substance: TOZINAMERAN
     Indication: COVID-19 immunisation
     Dosage: 1 IN ONCE (BOOSTER DOSE)
     Route: 030
     Dates: start: 20211229, end: 20211229
  7. GABAPENTIN [Concomitant]
     Active Substance: GABAPENTIN
     Indication: Pain
     Route: 048
     Dates: start: 2005
  8. ATORVASTATIN [Concomitant]
     Active Substance: ATORVASTATIN
     Indication: Blood cholesterol abnormal
     Route: 048
     Dates: start: 2005
  9. VITAMIN B-COMPLEX [Concomitant]
     Active Substance: DEXPANTHENOL\NIACINAMIDE\PYRIDOXINE HYDROCHLORIDE\RIBOFLAVIN 5^-PHOSPHATE SODIUM\THIAMINE HYDROCHLOR
     Indication: Supplementation therapy
     Route: 048
     Dates: start: 2005
  10. ARNUITY ELLIPTA [Concomitant]
     Active Substance: FLUTICASONE FUROATE
     Indication: Asthma
     Route: 055
     Dates: start: 201910
  11. ANASTROZOLE [Concomitant]
     Active Substance: ANASTROZOLE
     Indication: Breast cancer
     Route: 065
     Dates: start: 202101
  12. CALCIUM [Concomitant]
     Active Substance: CALCIUM
     Indication: Osteoporosis prophylaxis
     Route: 048
     Dates: start: 2020
  13. VITAMIN D3 [Concomitant]
     Active Substance: CHOLECALCIFEROL
     Indication: Osteoporosis prophylaxis
     Route: 048
     Dates: start: 2020
  14. FISH OIL [Concomitant]
     Active Substance: FISH OIL
     Indication: Blood cholesterol increased
     Route: 048
     Dates: start: 2005
  15. MONTELUKAST [Concomitant]
     Active Substance: MONTELUKAST SODIUM
     Indication: Asthma
     Route: 048
     Dates: start: 2019
  16. SERTRALINE [Concomitant]
     Active Substance: SERTRALINE HYDROCHLORIDE
     Indication: Depression
     Dosage: PILLS
     Route: 048
     Dates: start: 202203
  17. HYDROXYZINE HYDROCHLORIDE [Concomitant]
     Active Substance: HYDROXYZINE HYDROCHLORIDE
     Indication: Anxiety
     Dosage: PILLS
     Route: 048

REACTIONS (6)
  - Adverse drug reaction [Recovered/Resolved]
  - Feeling abnormal [Unknown]
  - Dizziness [Unknown]
  - Chest discomfort [Unknown]
  - Nausea [Unknown]
  - Unevaluable event [Unknown]

NARRATIVE: CASE EVENT DATE: 20220427
